FAERS Safety Report 18945281 (Version 1)
Quarter: 2021Q1

REPORT INFORMATION
  Report Type: Spontaneous
  Country: US (occurrence: US)
  Receive Date: 20210226
  Receipt Date: 20210226
  Transmission Date: 20210420
  Serious: No
  Sender: FDA-Public Use
  Company Number: US-AMNEAL PHARMACEUTICALS-2020-AMRX-03710

PATIENT
  Age: 1 Year
  Sex: Female

DRUGS (3)
  1. EMVERM [Suspect]
     Active Substance: MEBENDAZOLE
     Dosage: 2 TABLETS, QD, FOR 2 DAYS
     Route: 048
     Dates: start: 202009, end: 2020
  2. EMVERM [Suspect]
     Active Substance: MEBENDAZOLE
     Dosage: 2 TABLETS, QD, FOR 3 DAYS
     Route: 048
     Dates: start: 202010, end: 202011
  3. EMVERM [Suspect]
     Active Substance: MEBENDAZOLE
     Indication: ENTEROBIASIS
     Dosage: 1 TABLETS, QD, FOR 3 DAYS
     Route: 048
     Dates: start: 202009, end: 202009

REACTIONS (1)
  - Drug ineffective [Not Recovered/Not Resolved]

NARRATIVE: CASE EVENT DATE: 202009
